FAERS Safety Report 9785724 (Version 1)
Quarter: 2013Q4

REPORT INFORMATION
  Report Type: Spontaneous
  Country: US (occurrence: None)
  Receive Date: 20131226
  Receipt Date: 20131226
  Transmission Date: 20140711
  Serious: Yes (Disabling)
  Sender: FDA-Public Use
  Company Number: None

PATIENT
  Age: 78 Year
  Sex: Female
  Weight: 61.24 kg

DRUGS (13)
  1. PRAVASTATIN SODIUM [Suspect]
     Indication: HYPERLIPIDAEMIA
     Route: 048
     Dates: start: 20071107, end: 20130630
  2. ATENOLOL [Concomitant]
     Indication: HYPERTENSION
  3. AMLODIPINE BESYLATE [Concomitant]
     Indication: HYPERTENSION
  4. EQUATE [Concomitant]
  5. COD LIVER OIL [Concomitant]
  6. VITAMIN C [Concomitant]
  7. CO Q 10 [Concomitant]
  8. PROBIOTIC [Concomitant]
  9. CALCIUM CITRATE +D [Concomitant]
  10. SILICA [Concomitant]
  11. BIOTIN [Concomitant]
  12. ZINC [Concomitant]
  13. METAMUCIL [Concomitant]
     Dosage: 1-3X DAILY AS NEEDED RARELY

REACTIONS (3)
  - Musculoskeletal chest pain [None]
  - Back pain [None]
  - Musculoskeletal pain [None]
